FAERS Safety Report 9001033 (Version 1)
Quarter: 2013Q1

REPORT INFORMATION
  Report Type: Report from Study
  Country: US (occurrence: US)
  Receive Date: 20130107
  Receipt Date: 20130107
  Transmission Date: 20140127
  Serious: No
  Sender: FDA-Public Use
  Company Number: US-VERTEX PHARMACEUTICALS INC.-2013-000181

PATIENT
  Sex: Male

DRUGS (6)
  1. VX-950 (TELAPREVIR) [Suspect]
     Indication: HEPATITIS C
     Dosage: 750 MG, TID
     Route: 048
  2. PEGASYS [Suspect]
     Indication: HEPATITIS C
     Dosage: 180 ?G, UNK
  3. RIBAVIRIN [Suspect]
     Indication: HEPATITIS C
     Dosage: 200 MG, UNK
  4. GLYBURIDE [Concomitant]
     Dosage: 5 MG, UNK
  5. LISINOPRIL/HCTZ [Concomitant]
     Dosage: 10-12.5
  6. ASPIRIN [Concomitant]
     Dosage: 81 MG, UNK

REACTIONS (1)
  - Drug ineffective [Unknown]
